FAERS Safety Report 8549859-7 (Version None)
Quarter: 2012Q3

REPORT INFORMATION
  Report Type: 
  Country: None (occurrence: None)
  Receive Date: 20120730
  Receipt Date: 20110726
  Transmission Date: 20120928
  Serious: No
  Sender: FDA-Public Use
  Company Number: US-GLAXOSMITHKLINE-A0939138A

PATIENT
  Sex: Female

DRUGS (2)
  1. IMITREX [Suspect]
     Indication: MIGRAINE
     Route: 048
  2. NAPROXEN [Suspect]
     Indication: MIGRAINE
     Route: 048

REACTIONS (1)
  - THERAPEUTIC RESPONSE DECREASED [None]
